FAERS Safety Report 17331181 (Version 1)
Quarter: 2020Q1

REPORT INFORMATION
  Report Type: Spontaneous
  Country: US (occurrence: US)
  Receive Date: 20200128
  Receipt Date: 20200128
  Transmission Date: 20200409
  Serious: Yes (Other)
  Sender: FDA-Public Use
  Company Number: US-REGENERON PHARMACEUTICALS, INC.-2019-52582

PATIENT

DRUGS (1)
  1. EYLEA [Suspect]
     Active Substance: AFLIBERCEPT
     Indication: NEOVASCULAR AGE-RELATED MACULAR DEGENERATION
     Dosage: .2 ML, UNK
     Dates: start: 20180112

REACTIONS (3)
  - Non-infectious endophthalmitis [Unknown]
  - Eye injury [None]
  - Foreign body in eye [Unknown]

NARRATIVE: CASE EVENT DATE: 201801
